FAERS Safety Report 12470544 (Version 2)
Quarter: 2016Q2

REPORT INFORMATION
  Report Type: Spontaneous
  Country: US (occurrence: US)
  Receive Date: 20160616
  Receipt Date: 20160618
  Transmission Date: 20160815
  Serious: No
  Sender: FDA-Public Use
  Company Number: US-009507513-1606USA003853

PATIENT
  Sex: Female

DRUGS (1)
  1. ASMANEX [Suspect]
     Active Substance: MOMETASONE FUROATE
     Dosage: STRENGTH: 220 MICROGRAM, 60 DOSE
     Route: 055

REACTIONS (4)
  - Product quality issue [Unknown]
  - Chest discomfort [Not Recovered/Not Resolved]
  - Wheezing [Not Recovered/Not Resolved]
  - Drug dose omission [Unknown]
